FAERS Safety Report 8490004-4 (Version None)
Quarter: 2012Q2

REPORT INFORMATION
  Report Type: 
  Country: None (occurrence: None)
  Receive Date: 20120626
  Receipt Date: 20120613
  Transmission Date: 20120825
  Serious: Yes (Other)
  Sender: FDA-Public Use
  Company Number: USA/USA/12/0024774

PATIENT
  Age: 56 Year
  Sex: Female

DRUGS (2)
  1. ANASTROZOLE [Suspect]
     Indication: ADJUVANT THERAPY
     Dates: start: 20110820, end: 20111101
  2. LETROZOLE [Suspect]
     Indication: ADJUVANT THERAPY
     Dates: start: 20111101, end: 20111115

REACTIONS (14)
  - MOOD SWINGS [None]
  - DISTURBANCE IN ATTENTION [None]
  - SUICIDAL IDEATION [None]
  - PAIN [None]
  - DEPRESSION [None]
  - ABNORMAL BEHAVIOUR [None]
  - IRRITABILITY [None]
  - ANHEDONIA [None]
  - MEMORY IMPAIRMENT [None]
  - STRESS [None]
  - ANXIETY [None]
  - ASTHENIA [None]
  - HOT FLUSH [None]
  - ANGER [None]
